FAERS Safety Report 9460316 (Version 1)
Quarter: 2013Q3

REPORT INFORMATION
  Report Type: Spontaneous
  Country: US (occurrence: None)
  Receive Date: 20130812
  Receipt Date: 20130812
  Transmission Date: 20140515
  Serious: Yes (Other)
  Sender: FDA-Public Use
  Company Number: 2013SA049546

PATIENT
  Age: 56 Year
  Sex: Female

DRUGS (13)
  1. AUBAGIO [Suspect]
     Indication: MULTIPLE SCLEROSIS
     Route: 048
     Dates: start: 201304
  2. LISINOPRIL [Concomitant]
  3. METFORMIN [Concomitant]
  4. FAMPRIDINE [Concomitant]
  5. VITAMIN D [Concomitant]
  6. COQ10 [Concomitant]
  7. IBUPROFEN [Concomitant]
  8. FISH OIL [Concomitant]
  9. TIZANIDINE [Concomitant]
  10. BACLOFEN [Concomitant]
  11. OXYBUTYNIN [Concomitant]
  12. VITAMIN B12 [Concomitant]
  13. LYRICA [Concomitant]

REACTIONS (9)
  - Muscle spasms [None]
  - Feeling cold [None]
  - Multiple sclerosis relapse [None]
  - Cholelithiasis [None]
  - Hypoaesthesia [None]
  - Pain in extremity [None]
  - Sensation of heaviness [None]
  - Local swelling [None]
  - Hypoaesthesia [None]
